FAERS Safety Report 8141583-8 (Version None)
Quarter: 2012Q1

REPORT INFORMATION
  Report Type: 
  Country: None (occurrence: None)
  Receive Date: 20120103
  Receipt Date: 20111115
  Transmission Date: 20120608
  Serious: No
  Sender: FDA-Public Use
  Company Number: AE-2011-002626

PATIENT
  Age: 43 Year
  Sex: Female
  Weight: 82.1011 kg

DRUGS (9)
  1. INCIVEK [Suspect]
     Dosage: 2250 MG (750 MG,3 IN 1 D),ORAL
     Route: 048
     Dates: start: 20111008
  2. SYNTHROID [Concomitant]
  3. PEGINTERFERON (PEGINTERFERON ALFA-2A) [Concomitant]
  4. DIAZEPAM [Concomitant]
  5. RIBAVIRIN [Concomitant]
  6. FLEXERIL [Concomitant]
  7. LAMICTAL [Concomitant]
  8. PANTOPRAZOLE [Concomitant]
  9. CELEXA [Concomitant]

REACTIONS (3)
  - ANORECTAL DISCOMFORT [None]
  - DIZZINESS [None]
  - CONFUSIONAL STATE [None]
